FAERS Safety Report 24664287 (Version 1)
Quarter: 2024Q4

REPORT INFORMATION
  Report Type: Spontaneous
  Country: US (occurrence: US)
  Receive Date: 20241126
  Receipt Date: 20241126
  Transmission Date: 20250115
  Serious: Yes (Other)
  Sender: AUROBINDO
  Company Number: US-AUROBINDO-AUR-APL-2024-057181

PATIENT
  Age: 34 Year
  Sex: Male

DRUGS (6)
  1. BUDESONIDE [Suspect]
     Active Substance: BUDESONIDE
     Indication: Hypogammaglobulinaemia
     Dosage: UNK
     Route: 065
  2. BUDESONIDE [Suspect]
     Active Substance: BUDESONIDE
     Indication: Gastrointestinal disorder
  3. MESALAMINE [Suspect]
     Active Substance: MESALAMINE
     Indication: Hypogammaglobulinaemia
     Dosage: UNK
     Route: 065
  4. MESALAMINE [Suspect]
     Active Substance: MESALAMINE
     Indication: Gastrointestinal disorder
  5. AZATHIOPRINE [Suspect]
     Active Substance: AZATHIOPRINE
     Indication: Hypogammaglobulinaemia
     Dosage: UNK
     Route: 065
  6. AZATHIOPRINE [Suspect]
     Active Substance: AZATHIOPRINE
     Indication: Gastrointestinal disorder

REACTIONS (1)
  - Drug ineffective [Unknown]
